FAERS Safety Report 16945147 (Version 5)
Quarter: 2019Q4

REPORT INFORMATION
  Report Type: Spontaneous
  Country: FR (occurrence: FR)
  Receive Date: 20191022
  Receipt Date: 20191213
  Transmission Date: 20200122
  Serious: Yes (Hospitalization, Other)
  Sender: FDA-Public Use
  Company Number: FR-TEVA-2019-FR-1125340

PATIENT
  Age: 31 Year
  Sex: Female

DRUGS (15)
  1. BROMAZEPAM [Suspect]
     Active Substance: BROMAZEPAM
     Indication: PRODUCT USED FOR UNKNOWN INDICATION
     Dosage: 1.5 MILLIGRAM DAILY; 1.5 MG, Z;
     Route: 048
  2. ZOLPIDEM [Suspect]
     Active Substance: ZOLPIDEM TARTRATE
     Indication: PRODUCT USED FOR UNKNOWN INDICATION
     Dosage: 10 MILLIGRAM DAILY;
     Route: 048
  3. CALCIDOSE [Concomitant]
     Indication: PRODUCT USED FOR UNKNOWN INDICATION
  4. ZOLPIDEM [Suspect]
     Active Substance: ZOLPIDEM TARTRATE
     Dosage: 10 MILLIGRAM DAILY;
     Route: 048
  5. BROMAZEPAM [Suspect]
     Active Substance: BROMAZEPAM
     Dosage: 1.5 MILLIGRAM DAILY; AT UNKNOWN FREQUENCY
     Route: 048
  6. BACTRIM [Suspect]
     Active Substance: SULFAMETHOXAZOLE\TRIMETHOPRIM
     Indication: PRODUCT USED FOR UNKNOWN INDICATION
     Dosage: UNKNOWN DOSE AND FREQUENCY
     Route: 048
     Dates: start: 201503, end: 20160715
  7. IXPRIM [Concomitant]
     Active Substance: ACETAMINOPHEN\TRAMADOL HYDROCHLORIDE
     Indication: PRODUCT USED FOR UNKNOWN INDICATION
  8. DICLOFENAC [Suspect]
     Active Substance: DICLOFENAC
     Indication: MUSCULOSKELETAL PAIN
     Dosage: 2 DOSAGE FORMS DAILY;
     Route: 065
     Dates: start: 20121029, end: 20121029
  9. DIFFU-K [Concomitant]
     Active Substance: POTASSIUM CHLORIDE
     Indication: PRODUCT USED FOR UNKNOWN INDICATION
     Dosage: 600MG
  10. ESOMEPRAZOLE. [Concomitant]
     Active Substance: ESOMEPRAZOLE MAGNESIUM
     Indication: PRODUCT USED FOR UNKNOWN INDICATION
  11. OMEPRAZOLE. [Suspect]
     Active Substance: OMEPRAZOLE
     Indication: PRODUCT USED FOR UNKNOWN INDICATION
     Dosage: 20 MILLIGRAM DAILY;
     Route: 048
     Dates: start: 2013
  12. ANTIHYPERTENSIVES [Concomitant]
     Active Substance: UNSPECIFIED INGREDIENT
     Indication: PRODUCT USED FOR UNKNOWN INDICATION
  13. ACTONEL [Suspect]
     Active Substance: RISEDRONATE SODIUM
     Indication: PRODUCT USED FOR UNKNOWN INDICATION
     Dosage: 35 MILLIGRAM WEEKLY
     Route: 048
  14. CORTANCYL [Concomitant]
     Active Substance: PREDNISONE
     Indication: PRODUCT USED FOR UNKNOWN INDICATION
     Dosage: 6 MILLIGRAM DAILY; 6 MILLIGRAM EVERY 1 DAY(S)?6 MG, QD
  15. SPECIAFOLDINE [Concomitant]
     Active Substance: FOLIC ACID
     Indication: PRODUCT USED FOR UNKNOWN INDICATION
     Dosage: 5 MILLIGRAM DAILY; 5 MILLIGRAM EVERY 1 DAY(S)?5 MG, QD

REACTIONS (6)
  - Bronchitis [Not Recovered/Not Resolved]
  - Respiratory disorder [Recovered/Resolved]
  - Chest pain [Not Recovered/Not Resolved]
  - Agranulocytosis [Unknown]
  - Oesophageal pain [Recovered/Resolved]
  - Cough [Unknown]

NARRATIVE: CASE EVENT DATE: 20121029
